FAERS Safety Report 13893366 (Version 1)
Quarter: 2017Q3

REPORT INFORMATION
  Report Type: Spontaneous
  Country: HK (occurrence: HK)
  Receive Date: 20170822
  Receipt Date: 20170822
  Transmission Date: 20171127
  Serious: Yes (Life-Threatening, Hospitalization)
  Sender: FDA-Public Use
  Company Number: HK-BAUSCH-BL-2017-025109

PATIENT
  Age: 59 Year
  Sex: Male

DRUGS (2)
  1. METRONIDAZOLE. [Suspect]
     Active Substance: METRONIDAZOLE
     Indication: CLOSTRIDIUM DIFFICILE INFECTION
     Route: 048
  2. AMOXICILLIN/CLAVULANIC ACID [Suspect]
     Active Substance: AMOXICILLIN\CLAVULANIC ACID
     Indication: PRODUCT USED FOR UNKNOWN INDICATION
     Route: 048

REACTIONS (8)
  - Hypoalbuminaemia [Recovered/Resolved]
  - Large intestinal stenosis [Recovered/Resolved]
  - Shock [Unknown]
  - Blood urea increased [Recovered/Resolved]
  - Pseudomembranous colitis [Recovering/Resolving]
  - Anaemia [Unknown]
  - Dehydration [Recovered/Resolved]
  - Hyponatraemia [Recovered/Resolved]
